FAERS Safety Report 9719212 (Version 1)
Quarter: 2013Q4

REPORT INFORMATION
  Report Type: Spontaneous
  Country: DE (occurrence: DE)
  Receive Date: 20131127
  Receipt Date: 20131127
  Transmission Date: 20140711
  Serious: Yes (Other)
  Sender: FDA-Public Use
  Company Number: PHHY2013DE134532

PATIENT
  Age: 58 Year
  Sex: Female

DRUGS (6)
  1. LEPONEX [Suspect]
     Dosage: 300 MG, QD
     Route: 048
     Dates: start: 2006, end: 20130325
  2. LEPONEX [Suspect]
     Dosage: 300 MG, QD
     Route: 048
     Dates: start: 20130327
  3. RISPERDAL [Concomitant]
     Dosage: 2 MG, EVERY DAY
     Dates: start: 2006
  4. ERGENYL                            /01294701/ [Concomitant]
     Dosage: 750 MG, EVERY DAY
     Dates: start: 2006
  5. DIPIPERON [Concomitant]
     Dosage: 80 MG, UNK
     Route: 048
  6. GASTROZEPIN [Concomitant]
     Dosage: 75 MG, UNK
     Route: 048

REACTIONS (2)
  - Drug level increased [Recovered/Resolved]
  - Toxicity to various agents [Recovered/Resolved]
